FAERS Safety Report 17141551 (Version 1)
Quarter: 2019Q4

REPORT INFORMATION
  Report Type: Spontaneous
  Country: DE (occurrence: DE)
  Receive Date: 20191211
  Receipt Date: 20191211
  Transmission Date: 20200122
  Serious: Yes (Other)
  Sender: FDA-Public Use
  Company Number: DE-MALLINCKRODT-T201907709

PATIENT
  Sex: Male

DRUGS (1)
  1. UVADEX [Suspect]
     Active Substance: METHOXSALEN
     Indication: GRAFT VERSUS HOST DISEASE
     Dosage: UNK ,OTHER (EXTACORPOREAL), 15 CYCLES
     Route: 050

REACTIONS (3)
  - Graft versus host disease in skin [Unknown]
  - Disease progression [Unknown]
  - Product use in unapproved indication [Unknown]
